FAERS Safety Report 19173631 (Version 1)
Quarter: 2021Q2

REPORT INFORMATION
  Report Type: Spontaneous
  Country: PL (occurrence: PL)
  Receive Date: 20210423
  Receipt Date: 20210423
  Transmission Date: 20210717
  Serious: Yes (Other)
  Sender: FDA-Public Use
  Company Number: PL-AMGEN-POLSP2021058129

PATIENT
  Age: 64 Year
  Sex: Male
  Weight: 61 kg

DRUGS (4)
  1. FLUOROURACIL MEDAC [Suspect]
     Active Substance: FLUOROURACIL
     Indication: COLON CANCER
     Dosage: 2780 MILLIGRAM, THERAPY ONGOING
     Route: 042
     Dates: start: 20180522
  2. VECTIBIX [Suspect]
     Active Substance: PANITUMUMAB
     Indication: COLON CANCER
     Dosage: 366 MILLIGRAM THERAPY ONGOING
     Route: 042
     Dates: start: 20180522
  3. OXALIPLATINUM ACCORD [Suspect]
     Active Substance: OXALIPLATIN
     Indication: COLON CANCER
     Dosage: 50 MG W02436 . THERAPY ONGOING
     Route: 042
     Dates: start: 20180522
  4. OXALIPLATINUM ACCORD [Suspect]
     Active Substance: OXALIPLATIN
     Dosage: 100 MG PX00573. THERAPY ONGOING
     Route: 042
     Dates: start: 20180522

REACTIONS (2)
  - Neutropenia [Recovering/Resolving]
  - Asthenia [Recovering/Resolving]

NARRATIVE: CASE EVENT DATE: 20180820
